FAERS Safety Report 25640226 (Version 1)
Quarter: 2025Q3

REPORT INFORMATION
  Report Type: Other
  Country: GB (occurrence: GB)
  Receive Date: 20250804
  Receipt Date: 20250804
  Transmission Date: 20251020
  Serious: Yes (Other)
  Sender: MACLEODS
  Company Number: None

PATIENT

DRUGS (1)
  1. VARENICLINE [Suspect]
     Active Substance: VARENICLINE
     Indication: Smoking cessation therapy
     Dosage: 1MG, TWICE A DAY, MORNING AND EVENING
     Route: 065
     Dates: start: 20250709, end: 20250718

REACTIONS (5)
  - Severe cutaneous adverse reaction [Recovering/Resolving]
  - Hypoaesthesia [Unknown]
  - Contusion [Unknown]
  - Pain [Unknown]
  - Vasodilatation [Unknown]

NARRATIVE: CASE EVENT DATE: 20250719
